FAERS Safety Report 7823670-4 (Version None)
Quarter: 2011Q4

REPORT INFORMATION
  Report Type: 
  Country: None (occurrence: None)
  Receive Date: 20111019
  Receipt Date: 20111019
  Transmission Date: 20120403
  Serious: Yes (Other)
  Sender: FDA-Public Use
  Company Number: None

PATIENT
  Age: 60 Year
  Sex: Female
  Weight: 124.73 kg

DRUGS (1)
  1. ABILIFY [Suspect]
     Indication: DEPRESSION
     Dosage: 20 MG
     Route: 048
     Dates: start: 20070917, end: 20080307

REACTIONS (4)
  - MUSCLE TWITCHING [None]
  - GAIT DISTURBANCE [None]
  - ABASIA [None]
  - MUSCLE SPASMS [None]
